FAERS Safety Report 6475723-3 (Version None)
Quarter: 2009Q4

REPORT INFORMATION
  Report Type: 
  Country: None (occurrence: None)
  Receive Date: 20091204
  Receipt Date: 20091130
  Transmission Date: 20100525
  Serious: Yes (Death, Other)
  Sender: FDA-Public Use
  Company Number: US-CELGENEUS-163-21880-09091347

PATIENT
  Sex: Male

DRUGS (1)
  1. REVLIMID [Suspect]
     Route: 048
     Dates: start: 20090801

REACTIONS (6)
  - CARDIAC FAILURE [None]
  - CHRONIC LYMPHOCYTIC LEUKAEMIA [None]
  - DEHYDRATION [None]
  - MALIGNANT NEOPLASM PROGRESSION [None]
  - MALNUTRITION [None]
  - RENAL FAILURE [None]
